FAERS Safety Report 25688747 (Version 3)
Quarter: 2025Q3

REPORT INFORMATION
  Report Type: Spontaneous
  Country: JP (occurrence: JP)
  Receive Date: 20250818
  Receipt Date: 20250918
  Transmission Date: 20251020
  Serious: Yes (Life-Threatening, Hospitalization, Disabling, Other)
  Sender: MERCK SHARP & DOHME LLC
  Company Number: JP-009507513-2319155

PATIENT
  Age: 77 Year
  Sex: Male
  Weight: 57.6 kg

DRUGS (1)
  1. KEYTRUDA [Suspect]
     Active Substance: PEMBROLIZUMAB
     Indication: Renal cell carcinoma stage III
     Route: 041
     Dates: start: 20250807, end: 20250807

REACTIONS (5)
  - Cardiac arrest [Recovered/Resolved with Sequelae]
  - Renal failure [Unknown]
  - Hyperkalaemia [Unknown]
  - Dehydration [Recovered/Resolved]
  - Diarrhoea [Unknown]

NARRATIVE: CASE EVENT DATE: 20250801
